FAERS Safety Report 9196344 (Version 1)
Quarter: 2013Q1

REPORT INFORMATION
  Report Type: Spontaneous
  Country: IT (occurrence: IT)
  Receive Date: 20130328
  Receipt Date: 20130328
  Transmission Date: 20140127
  Serious: Yes (Other)
  Sender: FDA-Public Use
  Company Number: IT-MYLANLABS-2013S1005970

PATIENT
  Age: 68 Year
  Sex: Male
  Weight: 55 kg

DRUGS (4)
  1. IRINOTECAN HYDROCHLORIDE [Suspect]
     Indication: COLON CANCER
     Route: 042
     Dates: start: 20121117, end: 20121219
  2. IRINOTECAN HYDROCHLORIDE [Suspect]
     Indication: COLON CANCER
  3. AVASTIN /01555201/ [Suspect]
     Indication: COLON CANCER
     Route: 042
     Dates: start: 20120904, end: 20130105
  4. FLUOROURACIL [Suspect]
     Indication: COLON CANCER
     Route: 042
     Dates: start: 20120904, end: 20130122

REACTIONS (3)
  - Diarrhoea [Unknown]
  - Proteinuria [Unknown]
  - Thrombocytopenia [Unknown]
